FAERS Safety Report 11797418 (Version 1)
Quarter: 2015Q4

REPORT INFORMATION
  Report Type: Spontaneous
  Country: None (occurrence: None)
  Receive Date: 20151202
  Receipt Date: 20151202
  Transmission Date: 20160305
  Serious: No
  Sender: FDA-Public Use
  Company Number: None

PATIENT
  Age: 23 Year
  Sex: Female
  Weight: 56 kg

DRUGS (5)
  1. FERROUS SULFATE [Concomitant]
     Active Substance: FERROUS SULFATE\FERROUS SULFATE, DRIED
  2. COD LIVER OIL [Concomitant]
     Active Substance: COD LIVER OIL
  3. AUGMENTIN [Suspect]
     Active Substance: AMOXICILLIN\CLAVULANATE POTASSIUM
     Indication: GINGIVITIS
     Route: 048
     Dates: start: 20150804, end: 20150808
  4. VITAMIN B COMPLEX [Concomitant]
     Active Substance: CYANOCOBALAMIN\DEXPANTHENOL\NIACINAMIDE\PYRIDOXINE HYDROCHLORIDE\RIBOFLAVIN 5^-PHOSPHATE SODIUM\THIAMINE HYDROCHLORIDE\VITAMIN B COMPLEX
  5. AMOXIL [Suspect]
     Active Substance: AMOXICILLIN
     Indication: GINGIVITIS
     Route: 048
     Dates: start: 20151013, end: 20151017

REACTIONS (3)
  - Visual impairment [None]
  - Visual field defect [None]
  - Eye pain [None]

NARRATIVE: CASE EVENT DATE: 20151015
